FAERS Safety Report 6412883-4 (Version None)
Quarter: 2009Q4

REPORT INFORMATION
  Report Type: 
  Country: None (occurrence: None)
  Receive Date: 20091023
  Receipt Date: 20091015
  Transmission Date: 20100525
  Serious: Yes (Other)
  Sender: FDA-Public Use
  Company Number: PHHY2009CA44856

PATIENT
  Sex: Female

DRUGS (11)
  1. EXELON [Suspect]
     Indication: DEMENTIA ALZHEIMER'S TYPE
     Dosage: 10MG
     Dates: start: 20090313, end: 20090924
  2. LIPITOR [Concomitant]
  3. LOPRESSOR [Concomitant]
     Dosage: 100 MG, BID
  4. VASOTEC [Concomitant]
     Dosage: 20 MG, BID
  5. ASPIRIN [Concomitant]
     Dosage: 80 MG, UNK
  6. SEROQUEL [Concomitant]
     Dosage: 12.5 MG, UNK
  7. SINEMET [Concomitant]
     Dosage: 100/25, QID
  8. HYDROCHLOROTHIAZIDE [Concomitant]
     Dosage: 12.5 MG, UNK
  9. COLACE [Concomitant]
  10. SYNTHROID [Concomitant]
  11. METFORMIN HCL [Concomitant]

REACTIONS (2)
  - DRUG INEFFECTIVE [None]
  - GENERAL PHYSICAL HEALTH DETERIORATION [None]
